FAERS Safety Report 6176429-0 (Version None)
Quarter: 2009Q2

REPORT INFORMATION
  Report Type: 
  Country: None (occurrence: None)
  Receive Date: 20090501
  Receipt Date: 20090424
  Transmission Date: 20091009
  Serious: Yes (Hospitalization, Disabling)
  Sender: FDA-Public Use
  Company Number: DE-MERCK-0904DEU00111

PATIENT
  Age: 75 Year
  Sex: Male

DRUGS (5)
  1. JANUMET [Suspect]
     Indication: TYPE 2 DIABETES MELLITUS
     Route: 048
     Dates: start: 20081204
  2. METFORMIN [Concomitant]
     Indication: TYPE 2 DIABETES MELLITUS
     Route: 048
     Dates: end: 20081203
  3. METFORMIN [Concomitant]
     Route: 048
     Dates: start: 20081204
  4. GLYBURIDE [Concomitant]
     Indication: TYPE 2 DIABETES MELLITUS
     Route: 048
  5. GLYBURIDE [Concomitant]
     Route: 048
     Dates: start: 20081201

REACTIONS (1)
  - PEMPHIGOID [None]
